FAERS Safety Report 25631430 (Version 1)
Quarter: 2025Q3

REPORT INFORMATION
  Report Type: Spontaneous
  Country: IR (occurrence: IR)
  Receive Date: 20250801
  Receipt Date: 20250801
  Transmission Date: 20251020
  Serious: Yes (Hospitalization, Other)
  Sender: NOVITIUM PHARMA
  Company Number: IR-NOVITIUMPHARMA-2025IRNVP01847

PATIENT
  Age: 45 Year
  Sex: Female

DRUGS (10)
  1. DIGOXIN [Suspect]
     Active Substance: DIGOXIN
     Indication: Product used for unknown indication
  2. CLONAZEPAM [Concomitant]
     Active Substance: CLONAZEPAM
     Indication: Depression
  3. FLUOXETINE [Concomitant]
     Active Substance: FLUOXETINE HYDROCHLORIDE
     Indication: Depression
  4. PROPRANOLOL [Concomitant]
     Active Substance: PROPRANOLOL HYDROCHLORIDE
     Indication: Hyperthyroidism
  5. ACETAMINOPHEN [Concomitant]
     Active Substance: ACETAMINOPHEN
     Indication: Product used for unknown indication
  6. MORPHINE [Concomitant]
     Active Substance: MORPHINE
     Indication: Product used for unknown indication
  7. TRAMADOL [Concomitant]
     Active Substance: TRAMADOL
     Indication: Product used for unknown indication
  8. CHARCOAL [Concomitant]
     Active Substance: ACTIVATED CHARCOAL
     Indication: Product used for unknown indication
  9. ACETYLCYSTEINE [Concomitant]
     Active Substance: ACETYLCYSTEINE
     Indication: Product used for unknown indication
  10. Silybum-marianum [Concomitant]
     Indication: Product used for unknown indication

REACTIONS (12)
  - Coma [Unknown]
  - Respiratory distress [Unknown]
  - Suicide attempt [Unknown]
  - Mydriasis [Unknown]
  - Acid base balance abnormal [Unknown]
  - Toxicity to various agents [Unknown]
  - Toxicity to various agents [Unknown]
  - Hyperkalaemia [Recovering/Resolving]
  - Mental status changes [Unknown]
  - Electrolyte imbalance [Unknown]
  - Sinus tachycardia [Unknown]
  - Intentional overdose [Unknown]
